FAERS Safety Report 5044463-X (Version None)
Quarter: 2006Q3

REPORT INFORMATION
  Report Type: 
  Country: None (occurrence: None)
  Receive Date: 20060706
  Receipt Date: 20060626
  Transmission Date: 20061208
  Serious: Yes (Other)
  Sender: FDA-Public Use
  Company Number: BR-GLAXOSMITHKLINE-A0611048A

PATIENT
  Age: 50 Year
  Sex: Male
  Weight: 61 kg

DRUGS (2)
  1. BECLOSOL [Suspect]
     Indication: RHINITIS ALLERGIC
     Route: 045
     Dates: start: 20000101
  2. ATENOLOL [Concomitant]
     Dates: start: 20000101

REACTIONS (2)
  - BLINDNESS [None]
  - GLAUCOMA [None]
